FAERS Safety Report 19497154 (Version 1)
Quarter: 2021Q3

REPORT INFORMATION
  Report Type: Spontaneous
  Country: SE (occurrence: SE)
  Receive Date: 20210706
  Receipt Date: 20210706
  Transmission Date: 20211014
  Serious: Yes (Other)
  Sender: FDA-Public Use
  Company Number: SE-TAKEDA-2021TUS035364

PATIENT
  Age: 60 Year
  Sex: Male

DRUGS (2)
  1. ELVANSE [Suspect]
     Active Substance: LISDEXAMFETAMINE DIMESYLATE
     Dosage: 50 MILLIGRAM
     Route: 065
  2. ELVANSE [Suspect]
     Active Substance: LISDEXAMFETAMINE DIMESYLATE
     Indication: PRODUCT USED FOR UNKNOWN INDICATION
     Dosage: 70 MILLIGRAM
     Route: 065

REACTIONS (8)
  - Hepatic cancer [Unknown]
  - Aggression [Unknown]
  - Drug dependence [Unknown]
  - Disease progression [Unknown]
  - Drug ineffective [Unknown]
  - Blood pressure increased [Unknown]
  - Near death experience [Unknown]
  - Abnormal behaviour [Unknown]
